FAERS Safety Report 7305585-3 (Version None)
Quarter: 2011Q1

REPORT INFORMATION
  Report Type: 
  Country: None (occurrence: None)
  Receive Date: 20110222
  Receipt Date: 20110214
  Transmission Date: 20110831
  Serious: Yes (Other)
  Sender: FDA-Public Use
  Company Number: US-BAYER-2011-015925

PATIENT
  Sex: Female

DRUGS (3)
  1. YASMIN [Suspect]
     Dosage: UNK
     Route: 048
     Dates: start: 20081201
  2. YAZ [Suspect]
     Dosage: UNK
     Route: 048
     Dates: start: 20081201
  3. OCELLA [Suspect]
     Dosage: UNK
     Dates: start: 20081201

REACTIONS (5)
  - ANXIETY [None]
  - PAIN [None]
  - PULMONARY EMBOLISM [None]
  - INJURY [None]
  - FEAR [None]
